FAERS Safety Report 4959323-X (Version None)
Quarter: 2006Q1

REPORT INFORMATION
  Report Type: 
  Country: None (occurrence: None)
  Receive Date: 20060201
  Receipt Date: 20051113
  Transmission Date: 20060701
  Serious: No
  Sender: FDA-Public Use
  Company Number: 2005PV005278

PATIENT
  Age: 59 Year
  Sex: Female
  Weight: 110.2241 kg

DRUGS (6)
  1. BYETTA [Suspect]
     Indication: DIABETES MELLITUS NON-INSULIN-DEPENDENT
     Dosage: 5 MCG; BID; SC
     Route: 058
     Dates: start: 20051112
  2. GLUCOPHAGE [Concomitant]
  3. COREG [Concomitant]
  4. SYNTHROID [Concomitant]
  5. LIPITOR [Concomitant]
  6. LASIX [Concomitant]

REACTIONS (1)
  - BLOOD GLUCOSE INCREASED [None]
